FAERS Safety Report 5089467-6 (Version None)
Quarter: 2006Q3

REPORT INFORMATION
  Report Type: 
  Country: None (occurrence: None)
  Receive Date: 20060727
  Receipt Date: 20060504
  Transmission Date: 20061208
  Serious: Yes (Other)
  Sender: FDA-Public Use
  Company Number: 2006061107

PATIENT
  Age: 76 Year
  Sex: Female
  Weight: 81.6475 kg

DRUGS (22)
  1. LYRICA [Suspect]
     Indication: NEUROPATHY PERIPHERAL
     Dosage: 300 MG (150 MG, 2 IN 1 D), ORAL
     Route: 048
     Dates: start: 20050101, end: 20060401
  2. COUMADIN [Concomitant]
  3. ALL OTHER THERAPEUTIC PRODUCTS (ALL OTHER THERAPEUTIC PRODUCTS) [Concomitant]
  4. PREVACID [Concomitant]
  5. ALTACE [Concomitant]
  6. ATENOLOL [Concomitant]
  7. EVISTA [Concomitant]
  8. LIPITOR [Concomitant]
  9. DIGOXIN [Concomitant]
  10. NORVASC [Concomitant]
  11. LOTEMAX [Concomitant]
  12. LIDODERM PATCH (LIDOCAINE HYDROCHLORIDE) [Concomitant]
  13. IMITREX [Concomitant]
  14. ALEVE [Concomitant]
  15. VITAMIN E [Concomitant]
  16. FISH OIL (FISH OIL) [Concomitant]
  17. CENTRUM SILVER (ASCORBIC ACID, CALCIUM, MINERALS NOS, RETINOL, TOCOPHE [Concomitant]
  18. GARLIC (GARLIC) [Concomitant]
  19. EXTRA STRENGTH TYLENOL [Concomitant]
  20. CALCIUM WITH VITAMIN D (CALCIUM PHOSPHATE, CALCIUM SODIUM LACTATE, ERG [Concomitant]
  21. VITAMIN C (VITAMIN C) [Concomitant]
  22. VALPROIC ACID [Concomitant]

REACTIONS (2)
  - MYALGIA [None]
  - VISION BLURRED [None]
